FAERS Safety Report 23384161 (Version 1)
Quarter: 2024Q1

REPORT INFORMATION
  Report Type: Spontaneous
  Country: ES (occurrence: ES)
  Receive Date: 20240109
  Receipt Date: 20240109
  Transmission Date: 20240410
  Serious: Yes (Hospitalization)
  Sender: FDA-Public Use
  Company Number: None

PATIENT
  Age: 86 Year
  Sex: Male
  Weight: 83 kg

DRUGS (2)
  1. MYCOPHENOLATE MOFETIL [Interacting]
     Active Substance: MYCOPHENOLATE MOFETIL
     Indication: Myasthenia gravis
     Dosage: 1500 MILLIGRAM, QD
     Route: 048
     Dates: start: 20120901
  2. PREDNISONE [Interacting]
     Active Substance: PREDNISONE
     Indication: Myasthenia gravis
     Dosage: 40 MILLIGRAM, Q2D
     Route: 048
     Dates: start: 20120901

REACTIONS (3)
  - COVID-19 [Recovered/Resolved]
  - Influenza [Recovered/Resolved]
  - Drug interaction [Unknown]

NARRATIVE: CASE EVENT DATE: 20231125
